FAERS Safety Report 8920777 (Version 1)
Quarter: 2012Q4

REPORT INFORMATION
  Report Type: 
  Country: US (occurrence: US)
  Receive Date: 20121122
  Receipt Date: 20121122
  Transmission Date: 20130627
  Serious: Yes (Other)
  Sender: FDA-Public Use
  Company Number: US-PAR PHARMACEUTICAL, INC-2010MA002241

PATIENT
  Sex: Female
  Weight: 103.4 kg

DRUGS (13)
  1. METOCLOPRAMIDE [Suspect]
     Indication: IMPAIRED GASTRIC EMPTYING
     Dosage: 10 mg, qd
     Route: 048
     Dates: start: 20080106, end: 200903
  2. PREVACID [Concomitant]
     Indication: PRODUCT USED FOR UNKNOWN INDICATION
     Dosage: UNK, Unknown
     Route: 065
  3. NEURONTIN [Concomitant]
     Indication: PRODUCT USED FOR UNKNOWN INDICATION
     Dosage: UNK, Unknown
     Route: 065
  4. RELAFEN [Concomitant]
     Indication: PRODUCT USED FOR UNKNOWN INDICATION
     Dosage: UNK, Unknown
     Route: 065
  5. LISINOPRIL [Concomitant]
     Indication: PRODUCT USED FOR UNKNOWN INDICATION
     Dosage: UNK, Unknown
     Route: 065
  6. ATENOLOL [Concomitant]
     Indication: PRODUCT USED FOR UNKNOWN INDICATION
     Dosage: UNK, Unknown
     Route: 065
  7. ZOCOR [Concomitant]
     Indication: PRODUCT USED FOR UNKNOWN INDICATION
     Dosage: UNK, Unknown
     Route: 065
  8. PROVIGIL [Concomitant]
     Indication: PRODUCT USED FOR UNKNOWN INDICATION
     Dosage: UNK, Unknown
     Route: 065
  9. HYDROCHLOROTHIAZIDE [Concomitant]
     Indication: PRODUCT USED FOR UNKNOWN INDICATION
     Dosage: UNK, Unknown
     Route: 065
  10. CELEBREX [Concomitant]
     Indication: PRODUCT USED FOR UNKNOWN INDICATION
     Dosage: UNK, Unknown
     Route: 065
  11. CRESTOR [Concomitant]
     Indication: PRODUCT USED FOR UNKNOWN INDICATION
     Dosage: UNK, Unknown
     Route: 065
  12. OMEPRAZOLE [Concomitant]
     Indication: PRODUCT USED FOR UNKNOWN INDICATION
     Dosage: UNK, Unknown
     Route: 065
  13. PRAVASTATIN [Concomitant]
     Indication: PRODUCT USED FOR UNKNOWN INDICATION
     Dosage: UNK, Unknown
     Route: 065

REACTIONS (53)
  - Hot flush [Unknown]
  - Hyperhidrosis [Unknown]
  - Chills [Unknown]
  - Muscular weakness [Unknown]
  - Dyskinesia [Unknown]
  - Bruxism [Unknown]
  - Activities of daily living impaired [Unknown]
  - Emotional distress [Unknown]
  - Stress [Unknown]
  - Pain in jaw [Unknown]
  - Tremor [Unknown]
  - Muscle twitching [Unknown]
  - Restlessness [Unknown]
  - Social problem [Unknown]
  - Muscle spasms [Unknown]
  - Tardive dyskinesia [Unknown]
  - Weight decreased [Unknown]
  - Migraine [Unknown]
  - Fibromyalgia [Unknown]
  - Headache [Unknown]
  - Chest pain [Unknown]
  - Dyspnoea [Unknown]
  - Abdominal pain upper [Unknown]
  - Arthralgia [Unknown]
  - Paraesthesia [Unknown]
  - Alopecia [Unknown]
  - Fatigue [Unknown]
  - Tinnitus [Unknown]
  - Depression [Unknown]
  - Insomnia [Unknown]
  - Ehlers-Danlos syndrome [Unknown]
  - Sleep apnoea syndrome [Unknown]
  - Gastrooesophageal reflux disease [Unknown]
  - Rhinitis allergic [Unknown]
  - Hypertension [Unknown]
  - Movement disorder [Unknown]
  - Abdominal discomfort [Unknown]
  - Anxiety [Unknown]
  - Back pain [Unknown]
  - Tongue disorder [Unknown]
  - Cognitive disorder [Unknown]
  - Mental impairment [Unknown]
  - Diarrhoea [Unknown]
  - Arthropathy [Unknown]
  - Early satiety [Unknown]
  - Narcolepsy [Unknown]
  - Osteoarthritis [Unknown]
  - Drug intolerance [Unknown]
  - Mood altered [Unknown]
  - Neuropathy peripheral [Unknown]
  - Low density lipoprotein increased [Unknown]
  - Blood glucose abnormal [Unknown]
  - Glucose tolerance impaired [Unknown]
